FAERS Safety Report 21031985 (Version 2)
Quarter: 2022Q3

REPORT INFORMATION
  Report Type: Spontaneous
  Country: US (occurrence: None)
  Receive Date: 20220701
  Receipt Date: 20220813
  Transmission Date: 20221027
  Serious: No
  Sender: FDA-Public Use
  Company Number: 2022A239342

PATIENT
  Sex: Female

DRUGS (25)
  1. SYMBICORT [Suspect]
     Active Substance: BUDESONIDE\FORMOTEROL FUMARATE DIHYDRATE
     Route: 055
  2. XOLAIR [Concomitant]
     Active Substance: OMALIZUMAB
  3. ALBUTEROL [Concomitant]
     Active Substance: ALBUTEROL
  4. ARNUITY ELLIPTA FUROATE [Concomitant]
  5. ALIGN [Concomitant]
     Active Substance: BIFIDOBACTERIUM LONGUM SUBSP. INFANTIS
  6. ASPIRIN [Concomitant]
     Active Substance: ASPIRIN
  7. CYCLOBENZAPRINE [Concomitant]
     Active Substance: CYCLOBENZAPRINE
  8. DYMISTA [Concomitant]
     Active Substance: AZELASTINE HYDROCHLORIDE\FLUTICASONE PROPIONATE
  9. EPIPEN [Concomitant]
     Active Substance: EPINEPHRINE
  10. EZETIMIBE [Concomitant]
     Active Substance: EZETIMIBE
  11. NIZATIDINE [Concomitant]
     Active Substance: NIZATIDINE
  12. LEVOTHYROXINE [Concomitant]
     Active Substance: LEVOTHYROXINE
  13. LANSOPRAZOLE [Concomitant]
     Active Substance: LANSOPRAZOLE
  14. HYOSCYAMINE [Concomitant]
     Active Substance: HYOSCYAMINE
  15. VITAMIN D3 [Concomitant]
     Active Substance: CHOLECALCIFEROL
  16. MONTELUKAST [Concomitant]
     Active Substance: MONTELUKAST SODIUM
  17. LEXAPRO [Concomitant]
     Active Substance: ESCITALOPRAM OXALATE
  18. BACLOFEN [Concomitant]
     Active Substance: BACLOFEN
  19. CARAFATE [Concomitant]
     Active Substance: SUCRALFATE
  20. ZOLPIDEM [Concomitant]
     Active Substance: ZOLPIDEM TARTRATE
  21. ALLEGRA [Concomitant]
     Active Substance: FEXOFENADINE HYDROCHLORIDE
  22. ATORVASTATIN [Concomitant]
     Active Substance: ATORVASTATIN
  23. AZITHROMYCIN [Concomitant]
     Active Substance: AZITHROMYCIN
  24. IPRATROPIUM BROMIDE [Concomitant]
     Active Substance: IPRATROPIUM BROMIDE
  25. ESCITALOPRAM OXALATE [Concomitant]
     Active Substance: ESCITALOPRAM OXALATE

REACTIONS (3)
  - Stomatitis [Unknown]
  - Headache [Unknown]
  - Device ineffective [Unknown]
